FAERS Safety Report 4626235-0 (Version None)
Quarter: 2005Q2

REPORT INFORMATION
  Report Type: 
  Country: None (occurrence: None)
  Receive Date: 20050404
  Receipt Date: 20050323
  Transmission Date: 20051028
  Serious: Yes (Hospitalization)
  Sender: FDA-Public Use
  Company Number: US-JNJFOC-20050307089

PATIENT
  Sex: Male

DRUGS (2)
  1. CONCENTRATED MOTRIN INFANTS' [Suspect]
  2. CONCENTRATED MOTRIN INFANTS' [Suspect]
     Dosage: 1/4 OF SYRINGE Q4H, PRN

REACTIONS (3)
  - ASTHMA [None]
  - DRUG HYPERSENSITIVITY [None]
  - PNEUMONIA [None]
